FAERS Safety Report 14361433 (Version 4)
Quarter: 2018Q2

REPORT INFORMATION
  Report Type: Spontaneous
  Country: PL (occurrence: PL)
  Receive Date: 20180108
  Receipt Date: 20180418
  Transmission Date: 20180711
  Serious: Yes (Hospitalization, Other)
  Sender: FDA-Public Use
  Company Number: PL-AXELLIA-001249

PATIENT
  Age: 46 Year
  Sex: Male
  Weight: 97 kg

DRUGS (16)
  1. HYDROCORTISONE. [Suspect]
     Active Substance: HYDROCORTISONE
     Indication: ADRENAL INSUFFICIENCY
  2. LEVOFLOXACIN/LEVOFLOXACIN MESYLATE [Concomitant]
     Indication: PROPHYLAXIS
  3. FLUDARABINE [Concomitant]
     Active Substance: FLUDARABINE PHOSPHATE
  4. IBRUTINIB [Suspect]
     Active Substance: IBRUTINIB
     Indication: CHRONIC LYMPHOCYTIC LEUKAEMIA
     Dosage: ALSO RECEIVED 140 MG FROM 19-MAY-2016
     Route: 048
     Dates: start: 201503, end: 201512
  5. RAMIPRIL. [Concomitant]
     Active Substance: RAMIPRIL
     Indication: HYPERTENSION
  6. ACICLOVIR [Concomitant]
     Active Substance: ACYCLOVIR
     Indication: PROPHYLAXIS
  7. DOXORUBICIN/DOXORUBICIN HYDROCHLORIDE [Concomitant]
  8. CLADRIBINE. [Concomitant]
     Active Substance: CLADRIBINE
  9. VORICONAZOLE. [Suspect]
     Active Substance: VORICONAZOLE
     Indication: ANTIFUNGAL PROPHYLAXIS
     Dosage: DOSAGE FORM: UNSPECIFIED
  10. ALLOPURINOL. [Concomitant]
     Active Substance: ALLOPURINOL
     Indication: HYPERURICAEMIA
  11. ETOPOSIDE. [Concomitant]
     Active Substance: ETOPOSIDE
  12. RITUXIMAB. [Suspect]
     Active Substance: RITUXIMAB
     Indication: CHRONIC LYMPHOCYTIC LEUKAEMIA
     Dates: start: 20160704, end: 20160824
  13. BLEOMYCIN [Concomitant]
     Active Substance: BLEOMYCIN SULFATE
  14. PREDNISONE. [Concomitant]
     Active Substance: PREDNISONE
  15. CYCLOPHOSPHAMIDE/CYCLOPHOSPHAMIDE MONOHYDRATE [Concomitant]
  16. BENDAMUSTINE HYDROCHLORIDE. [Concomitant]
     Active Substance: BENDAMUSTINE HYDROCHLORIDE

REACTIONS (7)
  - Anaemia [Recovered/Resolved]
  - Bacterial infection [Not Recovered/Not Resolved]
  - Peptic ulcer haemorrhage [Recovered/Resolved]
  - Hypothyroidism [Unknown]
  - Chronic lymphocytic leukaemia [Unknown]
  - Fungal infection [Recovered/Resolved]
  - Upper respiratory tract infection [Unknown]

NARRATIVE: CASE EVENT DATE: 20160515
